FAERS Safety Report 9386737 (Version 1)
Quarter: 2013Q3

REPORT INFORMATION
  Report Type: Spontaneous
  Country: US (occurrence: US)
  Receive Date: 20130708
  Receipt Date: 20130708
  Transmission Date: 20140515
  Serious: No
  Sender: FDA-Public Use
  Company Number: US-PFIZER INC-2013198653

PATIENT
  Age: 54 Year
  Sex: Female

DRUGS (14)
  1. MORPHINE SULFATE [Suspect]
     Dosage: UNK
  2. TETRACYCLINE HCL [Suspect]
     Dosage: UNK
  3. SPIRIVA [Suspect]
     Dosage: UNK
  4. E-MYCIN [Suspect]
     Dosage: UNK
  5. LEVAQUIN [Suspect]
     Dosage: UNK
  6. FLEXERIL [Suspect]
     Dosage: UNK
  7. DIVALPROEX [Suspect]
     Dosage: UNK
  8. FLONASE [Suspect]
     Dosage: UNK
  9. AMITRIPTYLINE [Suspect]
     Dosage: UNK
  10. DEMEROL [Suspect]
     Dosage: UNK
  11. NALOXONE [Suspect]
     Dosage: UNK
  12. IODINE [Suspect]
     Dosage: UNK
  13. ULTRAM [Suspect]
     Dosage: UNK
  14. TORADOL [Suspect]
     Dosage: UNK

REACTIONS (1)
  - Drug hypersensitivity [Unknown]
